FAERS Safety Report 22963062 (Version 2)
Quarter: 2023Q4

REPORT INFORMATION
  Report Type: Spontaneous
  Country: FR (occurrence: FR)
  Receive Date: 20230920
  Receipt Date: 20231208
  Transmission Date: 20240109
  Serious: Yes (Hospitalization)
  Sender: FDA-Public Use
  Company Number: FR-ROCHE-3410274

PATIENT
  Age: 61 Year
  Sex: Male
  Weight: 67 kg

DRUGS (18)
  1. OXALIPLATIN [Suspect]
     Active Substance: OXALIPLATIN
     Indication: Colorectal cancer metastatic
     Dosage: XELOX REGIMEN
     Dates: start: 20230616
  2. OXALIPLATIN [Suspect]
     Active Substance: OXALIPLATIN
     Dosage: XELOX REGIMEN
     Dates: start: 20230731, end: 20230731
  3. CAPECITABINE [Suspect]
     Active Substance: CAPECITABINE
     Indication: Colorectal cancer metastatic
     Dosage: XELOX REGIMEN; DATE OF LAST ADMINISTRATION BEFORE SAE 13/AUG/2023?FORM OF ADMIN. TABLET (UNCOATED, O
     Dates: start: 20230616
  4. DEVICE\YTTRIUM Y-90 [Suspect]
     Active Substance: DEVICE\YTTRIUM Y-90
     Indication: Colorectal cancer metastatic
     Dosage: 1409 GY
     Dates: start: 20230711
  5. BEVACIZUMAB [Suspect]
     Active Substance: BEVACIZUMAB
     Indication: Colorectal cancer metastatic
     Dosage: FORM OF ADMIN. INTRAVENOUS INFUSION
     Dates: start: 20230731, end: 20230731
  6. ATEZOLIZUMAB [Suspect]
     Active Substance: ATEZOLIZUMAB
     Indication: Colorectal cancer metastatic
     Dosage: LAST DOSE: 31/JUL/2023
     Dates: start: 20230616
  7. ATEZOLIZUMAB [Suspect]
     Active Substance: ATEZOLIZUMAB
     Dosage: LAST DOSE
     Dates: start: 20230731, end: 20230731
  8. LOPERAMIDE [Concomitant]
     Active Substance: LOPERAMIDE
     Indication: Diarrhoea
     Dates: start: 20230704
  9. CHLORPROMAZINE [Concomitant]
     Active Substance: CHLORPROMAZINE
     Indication: Product used for unknown indication
     Dates: start: 20230824
  10. METOCLOPRAMIDE [Concomitant]
     Active Substance: METOCLOPRAMIDE
     Indication: Product used for unknown indication
     Dates: start: 20230824
  11. ACETAMINOPHEN [Concomitant]
     Active Substance: ACETAMINOPHEN
     Indication: Product used for unknown indication
     Dates: start: 20230704
  12. PHLOROGLUCINOL [Concomitant]
     Active Substance: PHLOROGLUCINOL
     Indication: Product used for unknown indication
     Dates: start: 20230704
  13. PHLOROGLUCINOL [Concomitant]
     Active Substance: PHLOROGLUCINOL
     Dosage: 04-JUL-2023: START
  14. PANTOPRAZOLE [Concomitant]
     Active Substance: PANTOPRAZOLE
     Indication: Product used for unknown indication
     Dates: start: 20230811
  15. PREDNISOLONE [Concomitant]
     Active Substance: PREDNISOLONE
     Indication: Product used for unknown indication
     Dates: start: 20230812, end: 20230812
  16. NEFOPAM [Concomitant]
     Active Substance: NEFOPAM
     Indication: Pain
     Dates: start: 20230811
  17. NEFOPAM [Concomitant]
     Active Substance: NEFOPAM
     Dosage: 20 MG?11-AUG-2023: START
  18. MONTMORILLONITE [Concomitant]
     Active Substance: MONTMORILLONITE
     Indication: Diarrhoea
     Dates: start: 20230704

REACTIONS (1)
  - General physical health deterioration [Recovered/Resolved]

NARRATIVE: CASE EVENT DATE: 20230816
